FAERS Safety Report 18600058 (Version 2)
Quarter: 2020Q4

REPORT INFORMATION
  Report Type: Spontaneous
  Country: RU (occurrence: RU)
  Receive Date: 20201210
  Receipt Date: 20201219
  Transmission Date: 20210114
  Serious: Yes (Other)
  Sender: FDA-Public Use
  Company Number: RU-STRIDES ARCOLAB LIMITED-2020SP015140

PATIENT
  Sex: Male
  Weight: 87 kg

DRUGS (12)
  1. PREDNISOLONE. [Suspect]
     Active Substance: PREDNISOLONE
     Dosage: 2.5 MILLIGRAM IN MORNING
     Route: 065
  2. FLUDROCORTISONE [Suspect]
     Active Substance: FLUDROCORTISONE
     Dosage: 200 MICROGRAM
     Route: 065
     Dates: start: 2019
  3. HYDROCORTISONE. [Suspect]
     Active Substance: HYDROCORTISONE
     Dosage: UNK, IN THE EVENING SPORADICALLY 2?3 TIMES A WEEK
     Route: 065
     Dates: start: 201802
  4. HYDROCORTISONE. [Suspect]
     Active Substance: HYDROCORTISONE
     Indication: PRODUCT USED FOR UNKNOWN INDICATION
     Dosage: 20MG PER DAY, 10 MG BY DAY AND BEFORE BED
     Route: 065
     Dates: start: 201802, end: 201802
  5. PREDNISOLONE. [Suspect]
     Active Substance: PREDNISOLONE
     Indication: PRODUCT USED FOR UNKNOWN INDICATION
     Dosage: 7.5 MG (1.5 DOSAGE FORM) PER DAY, TABLET
     Route: 065
     Dates: end: 201802
  6. PREDNISOLONE. [Suspect]
     Active Substance: PREDNISOLONE
     Dosage: 10MG (2 DF) PER DAY, 1 TABLET IN THE MORNING AND IN THE EVENING
     Route: 065
     Dates: start: 201802
  7. HYDROCORTISONE. [Suspect]
     Active Substance: HYDROCORTISONE
     Dosage: 20 MILLIGRAM PER DAY MORNING
     Route: 065
     Dates: start: 201802, end: 201802
  8. FLUDROCORTISONE [Suspect]
     Active Substance: FLUDROCORTISONE
     Indication: PRODUCT USED FOR UNKNOWN INDICATION
     Dosage: 100MCG (1DF) PER DAY MORNING
     Route: 065
     Dates: start: 201802, end: 201802
  9. FLUDROCORTISONE [Suspect]
     Active Substance: FLUDROCORTISONE
     Dosage: 0.075 MILLIGRAM PER DAY ((0.05 MG IN THE FASTED MORNING AND 0.025 (1/4 TABLETS) AT 4:00 P.M.)
     Route: 065
  10. FLUDROCORTISONE [Suspect]
     Active Substance: FLUDROCORTISONE
     Dosage: 150 MICROGRAM
     Route: 065
  11. FLUDROCORTISONE [Suspect]
     Active Substance: FLUDROCORTISONE
     Dosage: 0.5 DF PER DAY MORNING
     Route: 065
     Dates: start: 201802
  12. PREDNISOLONE. [Suspect]
     Active Substance: PREDNISOLONE
     Dosage: 5 MILLIGRAM, BID (5MG ? 2 TIMES A DAY (MORNING AFTER BREAKFAST AND EVENING (09:00 P.M))
     Route: 065

REACTIONS (5)
  - Metabolic disorder [Unknown]
  - Blood pressure increased [Recovered/Resolved]
  - Short stature [Unknown]
  - Obesity [Recovered/Resolved]
  - Tinnitus [Unknown]
